FAERS Safety Report 24007439 (Version 1)
Quarter: 2024Q2

REPORT INFORMATION
  Report Type: Spontaneous
  Country: CN (occurrence: CN)
  Receive Date: 20240625
  Receipt Date: 20240625
  Transmission Date: 20240716
  Serious: Yes (Life-Threatening, Other)
  Sender: FDA-Public Use
  Company Number: CN-ALCON LABORATORIES-ALC2024CN003022

PATIENT
  Age: 20 Year
  Sex: Male
  Weight: 48 kg

DRUGS (1)
  1. PROPARACAINE HYDROCHLORIDE [Suspect]
     Active Substance: PROPARACAINE HYDROCHLORIDE
     Indication: Local anaesthesia
     Dosage: 2 DROPS, ONCE/SINGLE
     Route: 001
     Dates: start: 20240607, end: 20240607

REACTIONS (1)
  - Anaphylactoid reaction [Recovered/Resolved]

NARRATIVE: CASE EVENT DATE: 20240607
